FAERS Safety Report 5043630-9 (Version None)
Quarter: 2006Q2

REPORT INFORMATION
  Report Type: 
  Country: None (occurrence: None)
  Receive Date: 20060628
  Receipt Date: 20060619
  Transmission Date: 20061013
  Serious: Yes (Hospitalization)
  Sender: FDA-Public Use
  Company Number: SUS1-2006-00572

PATIENT
  Age: 75 Year
  Sex: Male
  Weight: 67.1 kg

DRUGS (4)
  1. FOSRENOL [Suspect]
     Indication: HYPERPHOSPHATAEMIA
     Dosage: 1000 MG, 3X/DAY: TID, ORAL
     Route: 048
     Dates: start: 20050315
  2. PHOSLO [Concomitant]
  3. ATENOLOL [Concomitant]
  4. LOVASTATIN [Concomitant]

REACTIONS (1)
  - DYSPNOEA [None]
